FAERS Safety Report 18417644 (Version 2)
Quarter: 2021Q2

REPORT INFORMATION
  Report Type: Spontaneous
  Country: US (occurrence: US)
  Receive Date: 20201022
  Receipt Date: 20210423
  Transmission Date: 20210717
  Serious: No
  Sender: FDA-Public Use
  Company Number: 2020SGN02999

PATIENT
  Sex: Female

DRUGS (1)
  1. TUKYSA [Suspect]
     Active Substance: TUCATINIB
     Indication: BREAST CANCER FEMALE

REACTIONS (7)
  - Pneumonitis [Unknown]
  - Cough [Unknown]
  - Wrist fracture [Unknown]
  - Rash [Unknown]
  - Pain [Unknown]
  - Feeling abnormal [Unknown]
  - Disease progression [Unknown]
